FAERS Safety Report 13346488 (Version 1)
Quarter: 2017Q1

REPORT INFORMATION
  Report Type: Spontaneous
  Country: US (occurrence: US)
  Receive Date: 20170317
  Receipt Date: 20170317
  Transmission Date: 20170428
  Serious: No
  Sender: FDA-Public Use
  Company Number: US-BAYER-2017-050311

PATIENT
  Age: 39 Year
  Sex: Female

DRUGS (11)
  1. SYMBICORT [Concomitant]
     Active Substance: BUDESONIDE\FORMOTEROL FUMARATE DIHYDRATE
  2. IRON [CITRIC ACID,FERROUS SULFATE] [Concomitant]
     Active Substance: IRON
  3. LYRICA [Concomitant]
     Active Substance: PREGABALIN
  4. ESTRADIOL. [Suspect]
     Active Substance: ESTRADIOL
     Indication: MENOPAUSAL SYMPTOMS
     Dosage: 0.1 MG
     Route: 062
     Dates: start: 2016
  5. TOPAMAX [Concomitant]
     Active Substance: TOPIRAMATE
  6. VITAMIN D [Concomitant]
     Active Substance: CHOLECALCIFEROL
  7. ZYRTEC [Concomitant]
     Active Substance: CETIRIZINE HYDROCHLORIDE
  8. VITAMIN C IWAKI [ASCORBIC ACID] [Concomitant]
  9. MULTIVITAMINS [Concomitant]
     Active Substance: VITAMINS
  10. SINGULAIR [Concomitant]
     Active Substance: MONTELUKAST SODIUM
  11. ATENOLOL. [Concomitant]
     Active Substance: ATENOLOL

REACTIONS (5)
  - Anxiety [Not Recovered/Not Resolved]
  - Irritability [Not Recovered/Not Resolved]
  - Hot flush [Not Recovered/Not Resolved]
  - Product quality issue [None]
  - Drug ineffective [Not Recovered/Not Resolved]

NARRATIVE: CASE EVENT DATE: 201703
